FAERS Safety Report 26011572 (Version 1)
Quarter: 2025Q4

REPORT INFORMATION
  Report Type: Spontaneous
  Country: EU (occurrence: EU)
  Receive Date: 20251107
  Receipt Date: 20251107
  Transmission Date: 20260117
  Serious: Yes (Hospitalization)
  Sender: TEVA
  Company Number: None

PATIENT
  Age: 42 Year
  Sex: Male

DRUGS (6)
  1. QUETIAPINE [Suspect]
     Active Substance: QUETIAPINE
     Indication: Obsessive-compulsive disorder
     Dosage: QUETIAPINE (1136A)
     Route: 048
     Dates: start: 202503, end: 20250724
  2. LEVOMEPROMAZINE [Suspect]
     Active Substance: LEVOMEPROMAZINE
     Indication: Obsessive-compulsive disorder
     Route: 048
     Dates: start: 202503, end: 20250724
  3. VALPROIC ACID [Suspect]
     Active Substance: VALPROIC ACID
     Indication: Obsessive-compulsive disorder
     Dosage: VALPROIC ACID (3194A)
     Route: 048
     Dates: start: 202503
  4. HALOPERIDOL [Suspect]
     Active Substance: HALOPERIDOL
     Indication: Obsessive-compulsive disorder
     Dosage: HALOPERIDOL (1693A)
     Route: 048
     Dates: start: 202503, end: 20250724
  5. CLONAZEPAM [Concomitant]
     Active Substance: CLONAZEPAM
     Indication: Obsessive-compulsive disorder
     Dosage: CLONAZEPAM (635A)
     Route: 048
     Dates: start: 202503
  6. OLANZAPINE [Suspect]
     Active Substance: OLANZAPINE
     Indication: Obsessive-compulsive disorder
     Dosage: OLANZAPINE (2770A)
     Route: 048
     Dates: start: 202503, end: 20250724

REACTIONS (1)
  - Pancytopenia [Recovered/Resolved]

NARRATIVE: CASE EVENT DATE: 20250501
